FAERS Safety Report 6862776-3 (Version None)
Quarter: 2010Q2

REPORT INFORMATION
  Report Type: 
  Country: None (occurrence: None)
  Receive Date: 20100528
  Receipt Date: 20100322
  Transmission Date: 20101027
  Serious: No
  Sender: FDA-Public Use
  Company Number: 2010037510

PATIENT
  Age: 85 Year
  Sex: Male
  Weight: 113 kg

DRUGS (3)
  1. TOVIAZ [Suspect]
     Indication: POLLAKIURIA
     Dosage: ONE TABLET DAILY, ORAL
     Route: 048
     Dates: start: 20100101
  2. ATENOLOL [Suspect]
     Dosage: 25 MG
     Dates: start: 20100223
  3. WARFARIN SODIUM [Suspect]
     Dosage: 5 MG

REACTIONS (1)
  - EPISTAXIS [None]
